FAERS Safety Report 13732605 (Version 1)
Quarter: 2017Q3

REPORT INFORMATION
  Report Type: Spontaneous
  Country: FR (occurrence: FR)
  Receive Date: 20170707
  Receipt Date: 20170707
  Transmission Date: 20171127
  Serious: Yes (Hospitalization, Other)
  Sender: FDA-Public Use
  Company Number: FR-BRISTOL-MYERS SQUIBB COMPANY-BMS-2017-059571

PATIENT
  Age: 15 Year
  Sex: Female

DRUGS (1)
  1. ABILIFY [Suspect]
     Active Substance: ARIPIPRAZOLE
     Indication: PSYCHOTIC DISORDER
     Dosage: 10 MG, UNK
     Route: 048

REACTIONS (9)
  - Sleep disorder [Not Recovered/Not Resolved]
  - Delirium [Not Recovered/Not Resolved]
  - Suicidal ideation [Recovered/Resolved]
  - Drug ineffective [Unknown]
  - Dysarthria [Recovering/Resolving]
  - Confusional state [Unknown]
  - Product use in unapproved indication [Unknown]
  - Hallucination [Unknown]
  - Cognitive disorder [Unknown]

NARRATIVE: CASE EVENT DATE: 20170510
